FAERS Safety Report 11159621 (Version 1)
Quarter: 2015Q2

REPORT INFORMATION
  Report Type: Report from Study
  Country: US (occurrence: US)
  Receive Date: 20150603
  Receipt Date: 20150603
  Transmission Date: 20150821
  Serious: No
  Sender: FDA-Public Use
  Company Number: US-ABBVIE-14P-163-1262514-00

PATIENT
  Age: 51 Year
  Sex: Male

DRUGS (4)
  1. MARINOL [Suspect]
     Active Substance: DRONABINOL
     Indication: IMPAIRED GASTRIC EMPTYING
     Dates: start: 20130326
  2. PHENERGAN [Concomitant]
     Active Substance: PROMETHAZINE HYDROCHLORIDE
     Indication: NAUSEA
  3. MARINOL [Suspect]
     Active Substance: DRONABINOL
     Indication: NAUSEA
  4. ZOFRAN [Concomitant]
     Active Substance: ONDANSETRON HYDROCHLORIDE
     Indication: NAUSEA

REACTIONS (1)
  - Weight decreased [Not Recovered/Not Resolved]

NARRATIVE: CASE EVENT DATE: 201407
